FAERS Safety Report 7235800-6 (Version None)
Quarter: 2011Q1

REPORT INFORMATION
  Report Type: 
  Country: None (occurrence: None)
  Receive Date: 20110120
  Receipt Date: 20110112
  Transmission Date: 20110831
  Serious: Yes (Hospitalization)
  Sender: FDA-Public Use
  Company Number: ES-ASTRAZENECA-2011SE02251

PATIENT
  Age: 85 Year
  Sex: Female

DRUGS (1)
  1. TENORMIN [Suspect]
     Indication: HYPERTENSIVE CARDIOMYOPATHY
     Route: 048
     Dates: start: 20100202, end: 20100907

REACTIONS (4)
  - NAUSEA [None]
  - MALAISE [None]
  - BRADYCARDIA [None]
  - DIZZINESS [None]
